FAERS Safety Report 9504399 (Version 1)
Quarter: 2013Q3

REPORT INFORMATION
  Report Type: Spontaneous
  Country: US (occurrence: US)
  Receive Date: 20130906
  Receipt Date: 20130906
  Transmission Date: 20140515
  Serious: Yes (Hospitalization)
  Sender: FDA-Public Use
  Company Number: US-BRISTOL-MYERS SQUIBB COMPANY-19219310

PATIENT
  Age: 23 Year
  Sex: Male
  Weight: 95.24 kg

DRUGS (3)
  1. ABILIFY [Suspect]
     Indication: DEPRESSION
     Dosage: DOSE:2.5MG THEN 5 MG THEN 10MG
  2. ABILIFY [Suspect]
     Indication: PSYCHOTIC DISORDER
     Dosage: DOSE:2.5MG THEN 5 MG THEN 10MG
  3. ZOLOFT [Concomitant]

REACTIONS (6)
  - Eyelid ptosis [Not Recovered/Not Resolved]
  - Hyporeflexia [Recovered/Resolved]
  - Muscular weakness [Recovered/Resolved]
  - Urinary retention [Unknown]
  - Constipation [Unknown]
  - Decreased appetite [Unknown]
